FAERS Safety Report 4825210-0 (Version None)
Quarter: 2005Q4

REPORT INFORMATION
  Report Type: 
  Country: None (occurrence: None)
  Receive Date: 20051109
  Receipt Date: 20050221
  Transmission Date: 20060501
  Serious: Yes (Hospitalization)
  Sender: FDA-Public Use
  Company Number: 10370

PATIENT
  Age: 70 Year
  Sex: Female
  Weight: 76 kg

DRUGS (7)
  1. CARBOPLATIN [Suspect]
     Indication: OVARIAN CANCER
     Dosage: 760 MG ONCE IV
     Route: 042
     Dates: start: 20041125, end: 20041125
  2. CARBOPLATIN [Suspect]
     Indication: OVARIAN CANCER
     Dosage: 5 AUC
  3. ACETAMINOPHEN [Concomitant]
  4. RANITIDINE [Concomitant]
  5. TINZAPARIN [Concomitant]
  6. DEXAMETHASONE [Concomitant]
  7. DOMPERIDONE [Concomitant]

REACTIONS (4)
  - EPISTAXIS [None]
  - HYPOMAGNESAEMIA [None]
  - NEUTROPENIC SEPSIS [None]
  - THROMBOCYTOPENIA [None]
